FAERS Safety Report 6044518-7 (Version None)
Quarter: 2009Q1

REPORT INFORMATION
  Report Type: 
  Country: None (occurrence: None)
  Receive Date: 20090120
  Receipt Date: 20090116
  Transmission Date: 20090719
  Serious: Yes (Other)
  Sender: FDA-Public Use
  Company Number: GB-ABBOTT-09P-167-0498142-00

PATIENT
  Sex: Female

DRUGS (4)
  1. REDUCTIL [Suspect]
     Indication: OBESITY
  2. STENOLOLS [Concomitant]
     Indication: DRUG USE FOR UNKNOWN INDICATION
  3. SERETINE [Concomitant]
     Indication: DRUG USE FOR UNKNOWN INDICATION
  4. ALBUTEROL [Concomitant]
     Indication: DRUG USE FOR UNKNOWN INDICATION

REACTIONS (1)
  - CARDIOMYOPATHY [None]
